FAERS Safety Report 7469043-8 (Version None)
Quarter: 2011Q2

REPORT INFORMATION
  Report Type: 
  Country: None (occurrence: None)
  Receive Date: 20110429
  Receipt Date: 20110415
  Transmission Date: 20111010
  Serious: Yes (Hospitalization, Disabling, Other)
  Sender: FDA-Public Use
  Company Number: 2010SP042178

PATIENT
  Age: 21 Year
  Sex: Female
  Weight: 88.4514 kg

DRUGS (3)
  1. ACETAMINOPHEN [Concomitant]
  2. NUVARING [Suspect]
     Indication: CONTRACEPTION
     Dates: start: 20070101, end: 20080828
  3. MOTRIN [Concomitant]

REACTIONS (36)
  - PULMONARY EMBOLISM [None]
  - INFECTION [None]
  - LUNG NEOPLASM MALIGNANT [None]
  - TRICUSPID VALVE INCOMPETENCE [None]
  - ATELECTASIS [None]
  - LUNG INFILTRATION [None]
  - GASTROOESOPHAGEAL REFLUX DISEASE [None]
  - HYPERCOAGULATION [None]
  - PLEURAL EFFUSION [None]
  - PULMONARY MASS [None]
  - PULMONARY HYPERTENSION [None]
  - DYSPNOEA [None]
  - COUGH [None]
  - DILATATION VENTRICULAR [None]
  - LUNG NEOPLASM [None]
  - METASTASES TO LUNG [None]
  - DEEP VEIN THROMBOSIS [None]
  - THROMBOSIS [None]
  - HYPOXIA [None]
  - IMPAIRED WORK ABILITY [None]
  - CHOKING [None]
  - COAGULOPATHY [None]
  - PORTAL VEIN THROMBOSIS [None]
  - PAIN [None]
  - LEFT ATRIAL DILATATION [None]
  - MIDDLE INSOMNIA [None]
  - LOWER RESPIRATORY TRACT INFLAMMATION [None]
  - BACK INJURY [None]
  - HEADACHE [None]
  - DRUG EXPOSURE BEFORE PREGNANCY [None]
  - SYSTEMIC LUPUS ERYTHEMATOSUS [None]
  - MIGRAINE [None]
  - PLEURISY [None]
  - BRONCHITIS [None]
  - WEIGHT INCREASED [None]
  - PREGNANCY [None]
